FAERS Safety Report 6397151-1 (Version None)
Quarter: 2009Q4

REPORT INFORMATION
  Report Type: 
  Country: None (occurrence: None)
  Receive Date: 20091012
  Receipt Date: 20090929
  Transmission Date: 20100525
  Serious: Yes (Death, Other)
  Sender: FDA-Public Use
  Company Number: B0597096A

PATIENT
  Age: 55 Year
  Sex: Male

DRUGS (7)
  1. ZIDOVUDINE [Suspect]
     Indication: HIV INFECTION
  2. LAMIVUDINE [Suspect]
     Indication: HIV INFECTION
  3. ABACAVIR [Suspect]
     Indication: HIV INFECTION
  4. LOPINAVIR AND RITONAVIR [Suspect]
     Indication: HIV INFECTION
  5. DIDANOSINE [Suspect]
     Indication: HIV INFECTION
  6. EFAVIRENZ [Suspect]
     Indication: HIV INFECTION
  7. TICLOPIDINE HCL [Concomitant]

REACTIONS (5)
  - ABDOMINAL PAIN [None]
  - AORTIC ANEURYSM RUPTURE [None]
  - BACK PAIN [None]
  - DIARRHOEA [None]
  - DYSLIPIDAEMIA [None]
